FAERS Safety Report 10152425 (Version 2)
Quarter: 2014Q2

REPORT INFORMATION
  Report Type: Spontaneous
  Country: US (occurrence: US)
  Receive Date: 20140505
  Receipt Date: 20140505
  Transmission Date: 20141212
  Serious: No
  Sender: FDA-Public Use
  Company Number: US-TEVA-389571USA

PATIENT
  Age: 19 Year
  Sex: Female

DRUGS (5)
  1. CLARAVIS [Suspect]
     Dosage: 80 MILLIGRAM DAILY; WEEK 13
     Route: 048
     Dates: start: 20121207
  2. CLARAVIS [Suspect]
     Dosage: 40 MILLIGRAM DAILY;
     Route: 048
  3. CLARAVIS [Suspect]
     Dosage: 20 MILLIGRAM DAILY;
     Route: 048
  4. ORAL CONTRACEPTIVE NOS [Concomitant]
  5. SERTRALINE [Concomitant]

REACTIONS (2)
  - Dermatitis allergic [Unknown]
  - Rash [Unknown]
